FAERS Safety Report 16543694 (Version 3)
Quarter: 2021Q1

REPORT INFORMATION
  Report Type: Spontaneous
  Country: CA (occurrence: CA)
  Receive Date: 20190709
  Receipt Date: 20210216
  Transmission Date: 20210419
  Serious: Yes (Hospitalization, Congenital Anomaly, Other)
  Sender: FDA-Public Use
  Company Number: CA-TEVA-2019-CA-1072477

PATIENT
  Sex: Male

DRUGS (8)
  1. TOBACCO TABLET (S#79) [Suspect]
     Active Substance: TOBACCO LEAF
     Indication: PRODUCT USED FOR UNKNOWN INDICATION
     Route: 064
  2. CEPHALEXIN. [Suspect]
     Active Substance: CEPHALEXIN
     Indication: INFECTION
     Dosage: 2000 MILLIGRAM DAILY;
     Route: 064
  3. HEROIN [Suspect]
     Active Substance: DIAMORPHINE
     Indication: PRODUCT USED FOR UNKNOWN INDICATION
     Route: 064
  4. MARIJUANA [Suspect]
     Active Substance: CANNABIS SATIVA SUBSP. INDICA TOP
     Indication: PRODUCT USED FOR UNKNOWN INDICATION
     Route: 064
  5. TRIUMEQ [Suspect]
     Active Substance: ABACAVIR SULFATE\DOLUTEGRAVIR SODIUM\LAMIVUDINE
     Indication: HIV INFECTION
     Dosage: 1 DOSAGE FORMS DAILY;
     Route: 064
  6. CLINDAMYCIN. [Suspect]
     Active Substance: CLINDAMYCIN
     Indication: INFECTION
     Dosage: 1200 MILLIGRAM DAILY;
     Route: 064
  7. NICOTINE. [Suspect]
     Active Substance: NICOTINE
     Indication: PRODUCT USED FOR UNKNOWN INDICATION
     Route: 064
  8. COBICISTAT/ELVITEGRAVIR/EMTRICITABINE/TENOFOVIR ALAFENAMIDE FUMARATE [Concomitant]
     Active Substance: COBICISTAT\ELVITEGRAVIR\EMTRICITABINE\TENOFOVIR ALAFENAMIDE FUMARATE
     Indication: PRODUCT USED FOR UNKNOWN INDICATION
     Dosage: 1 DOSAGE FORMS DAILY;
     Route: 064

REACTIONS (7)
  - Blood creatinine increased [Not Recovered/Not Resolved]
  - Drug withdrawal syndrome neonatal [Not Recovered/Not Resolved]
  - Dysmorphism [Not Recovered/Not Resolved]
  - Foetal exposure during pregnancy [Not Recovered/Not Resolved]
  - Neonatal disorder [Not Recovered/Not Resolved]
  - Renal hypoplasia [Not Recovered/Not Resolved]
  - Venolymphatic malformation [Not Recovered/Not Resolved]
